FAERS Safety Report 4330407-2 (Version None)
Quarter: 2004Q1

REPORT INFORMATION
  Report Type: 
  Country: None (occurrence: None)
  Receive Date: 20040330
  Receipt Date: 20010320
  Transmission Date: 20041129
  Serious: Yes (Hospitalization)
  Sender: FDA-Public Use
  Company Number: 2002IC000312

PATIENT
  Age: 73 Year
  Sex: Female
  Weight: 71.4 kg

DRUGS (2)
  1. FLUOROURACIL [Suspect]
     Dosage: 637.5 MG; 5D EA 28D; INTRAVENOUS BOLUS
     Route: 040
     Dates: start: 20010226, end: 20010511
  2. LEUCOVORIN CALCIUM [Suspect]
     Dosage: 34 MG; 5D EA 38D; INTRAVENOUS BOLUS
     Route: 040
     Dates: start: 20010226, end: 20010511

REACTIONS (2)
  - AORTIC ANEURYSM [None]
  - FEBRILE NEUTROPENIA [None]
